FAERS Safety Report 6175673-6 (Version None)
Quarter: 2009Q2

REPORT INFORMATION
  Report Type: 
  Country: None (occurrence: None)
  Receive Date: 20090501
  Receipt Date: 20090331
  Transmission Date: 20091009
  Serious: No
  Sender: FDA-Public Use
  Company Number: US-BAYER-200917302NA

PATIENT
  Sex: Female

DRUGS (1)
  1. AVELOX [Suspect]
     Indication: DRUG USE FOR UNKNOWN INDICATION
     Dosage: TOTAL DAILY DOSE: 400 MG  UNIT DOSE: 400 MG
     Dates: start: 20090314, end: 20090315

REACTIONS (5)
  - FEELING JITTERY [None]
  - HEADACHE [None]
  - HYPERACUSIS [None]
  - NAUSEA [None]
  - VISUAL IMPAIRMENT [None]
